FAERS Safety Report 21325675 (Version 3)
Quarter: 2022Q3

REPORT INFORMATION
  Report Type: Spontaneous
  Country: JP (occurrence: JP)
  Receive Date: 20220912
  Receipt Date: 20220930
  Transmission Date: 20221027
  Serious: Yes (Death, Hospitalization, Other)
  Sender: FDA-Public Use
  Company Number: JP-AMGEN-JPNSP2022154733

PATIENT
  Sex: Male

DRUGS (1)
  1. OTEZLA [Suspect]
     Active Substance: APREMILAST
     Indication: Psoriasis
     Dosage: 60 MILLIGRAM, QD
     Route: 048

REACTIONS (9)
  - Dysphagia [Unknown]
  - Oesophageal cancer metastatic [Fatal]
  - Dermatomyositis [Unknown]
  - Hypopharyngeal cancer [Fatal]
  - Psoriasis [Recovering/Resolving]
  - Pruritus [Unknown]
  - Flagellate dermatitis [Unknown]
  - Malaise [Unknown]
  - Muscular weakness [Unknown]
